FAERS Safety Report 8155478-7 (Version None)
Quarter: 2012Q1

REPORT INFORMATION
  Report Type: 
  Country: None (occurrence: None)
  Receive Date: 20120222
  Receipt Date: 20120213
  Transmission Date: 20120608
  Serious: Yes (Hospitalization, Other)
  Sender: FDA-Public Use
  Company Number: US-ELI_LILLY_AND_COMPANY-US201104008006

PATIENT
  Sex: Female

DRUGS (13)
  1. MICRO-K [Concomitant]
     Dosage: 1 DF, BID
  2. FORTEO [Suspect]
     Dosage: 20 UG, QD
     Route: 065
  3. KLONOPIN [Concomitant]
     Dosage: 2 DF, BID
  4. FORTEO [Suspect]
     Dosage: 20 UG, QD
  5. COREG [Concomitant]
     Indication: CARDIAC DISORDER
     Dosage: 1 DF, BID
  6. FORTEO [Suspect]
     Dosage: 20 UG, QD
     Route: 065
     Dates: start: 20110321
  7. PREMARIN [Concomitant]
  8. FORTEO [Suspect]
     Dosage: 20 UG, QD
  9. BENTYL [Concomitant]
     Dosage: 1 DF, TID
  10. ESTRACE [Concomitant]
     Indication: BLADDER SPHINCTER ATONY
  11. FORTEO [Suspect]
     Indication: OSTEOPOROSIS
     Dosage: 20 UG, QD
     Route: 065
     Dates: start: 20090601, end: 20090601
  12. LISINOPRIL [Concomitant]
     Dosage: 1 DF, BID
  13. MEGESTROL ACETATE [Concomitant]

REACTIONS (21)
  - DECREASED APPETITE [None]
  - PAIN [None]
  - NAUSEA [None]
  - OXYGEN SATURATION DECREASED [None]
  - WEIGHT DECREASED [None]
  - HEADACHE [None]
  - SKIN LESION [None]
  - MYOCARDIAL INFARCTION [None]
  - JOINT INJURY [None]
  - NECK PAIN [None]
  - BALANCE DISORDER [None]
  - ARTHRALGIA [None]
  - MYOCARDIAL RUPTURE [None]
  - SPINAL FRACTURE [None]
  - BACK DISORDER [None]
  - FALL [None]
  - MUSCLE STRAIN [None]
  - CONTUSION [None]
  - BACK PAIN [None]
  - LIGAMENT SPRAIN [None]
  - SPINAL DISORDER [None]
